FAERS Safety Report 12515548 (Version 2)
Quarter: 2016Q3

REPORT INFORMATION
  Report Type: Spontaneous
  Country: US (occurrence: US)
  Receive Date: 20160630
  Receipt Date: 20160819
  Transmission Date: 20161109
  Serious: Yes (Hospitalization)
  Sender: FDA-Public Use
  Company Number: US-JNJFOC-20160501713

PATIENT
  Age: 81 Year
  Sex: Female

DRUGS (5)
  1. XARELTO [Suspect]
     Active Substance: RIVAROXABAN
     Indication: THROMBOSIS PROPHYLAXIS
     Dosage: DOSE VARYING FROM 15 MG TO 20 MG
     Route: 048
     Dates: start: 20121018, end: 20141016
  2. XARELTO [Suspect]
     Active Substance: RIVAROXABAN
     Indication: CEREBROVASCULAR ACCIDENT PROPHYLAXIS
     Dosage: DOSE VARYING FROM 15 MG TO 20 MG
     Route: 048
     Dates: start: 20121018, end: 20141016
  3. XARELTO [Suspect]
     Active Substance: RIVAROXABAN
     Indication: ATRIAL FIBRILLATION
     Dosage: DOSE VARYING FROM 15 MG TO 20 MG
     Route: 048
     Dates: start: 20121018, end: 20141016
  4. XARELTO [Suspect]
     Active Substance: RIVAROXABAN
     Indication: THROMBOSIS PROPHYLAXIS
     Dosage: DOSE VARYING FROM 15 MG TO 20 MG
     Route: 048
     Dates: start: 20121018, end: 20141016
  5. XARELTO [Suspect]
     Active Substance: RIVAROXABAN
     Indication: THROMBOSIS PROPHYLAXIS
     Dosage: DOSE VARYING FROM 15 MG TO 20 MG
     Route: 048
     Dates: start: 20121018, end: 20141016

REACTIONS (5)
  - Increased tendency to bruise [Unknown]
  - Syncope [Unknown]
  - Epistaxis [Unknown]
  - Ecchymosis [Recovering/Resolving]
  - Arthralgia [Recovering/Resolving]

NARRATIVE: CASE EVENT DATE: 20130205
